FAERS Safety Report 7564243-0 (Version None)
Quarter: 2011Q2

REPORT INFORMATION
  Report Type: 
  Country: None (occurrence: None)
  Receive Date: 20110622
  Receipt Date: 20110609
  Transmission Date: 20111010
  Serious: Yes (Hospitalization, Other)
  Sender: FDA-Public Use
  Company Number: PHHY2010US38580

PATIENT
  Sex: Male
  Weight: 97.73 kg

DRUGS (13)
  1. FAMOTIDINE [Concomitant]
  2. LOPRESSOR [Concomitant]
  3. ARANESP [Concomitant]
  4. CENTRUM [Concomitant]
  5. EXJADE [Suspect]
     Indication: SICKLE CELL ANAEMIA
     Dosage: 2000 MG
     Route: 048
     Dates: start: 20100501, end: 20101201
  6. TYLOX [Concomitant]
  7. HYDROCHLOROTHIAZIDE [Concomitant]
  8. FOLIC ACID [Concomitant]
  9. CALCIUM CARBONATE [Concomitant]
  10. KEFLEX [Concomitant]
  11. PHENERGAN HCL [Concomitant]
  12. CELEBREX [Concomitant]
  13. MAALOX                                  /USA/ [Concomitant]

REACTIONS (5)
  - MYOCARDIAL INFARCTION [None]
  - INFECTION [None]
  - SICKLE CELL ANAEMIA WITH CRISIS [None]
  - DIARRHOEA [None]
  - ARTHRALGIA [None]
